FAERS Safety Report 20392554 (Version 1)
Quarter: 2022Q1

REPORT INFORMATION
  Report Type: Spontaneous
  Country: US (occurrence: None)
  Receive Date: 20220128
  Receipt Date: 20220128
  Transmission Date: 20220423
  Serious: Yes (Hospitalization)
  Sender: FDA-Public Use
  Company Number: None

PATIENT
  Sex: Male

DRUGS (3)
  1. REPATHA [Suspect]
     Active Substance: EVOLOCUMAB
     Route: 058
     Dates: start: 20191024
  2. BRILINTA [Concomitant]
  3. VALSARTAN [Concomitant]

REACTIONS (3)
  - Therapy interrupted [None]
  - Insurance issue [None]
  - Chest pain [None]
